FAERS Safety Report 11604887 (Version 2)
Quarter: 2015Q4

REPORT INFORMATION
  Report Type: Report from Study
  Country: KR (occurrence: KR)
  Receive Date: 20151007
  Receipt Date: 20151009
  Transmission Date: 20160304
  Serious: Yes (Death)
  Sender: FDA-Public Use
  Company Number: KR-SA-2015SA153911

PATIENT
  Age: 74 Year
  Sex: Female

DRUGS (17)
  1. MUNOBAL [Concomitant]
     Active Substance: FELODIPINE
  2. VASTINAN [Concomitant]
  3. SODIUM BICARBONATE. [Concomitant]
     Active Substance: SODIUM BICARBONATE
     Dates: start: 20150813
  4. MATRIFEN [Concomitant]
     Active Substance: FENTANYL
     Dates: start: 20150828
  5. DOCETAXEL. [Suspect]
     Active Substance: DOCETAXEL
     Indication: GASTRIC CANCER
     Route: 042
     Dates: start: 20150925, end: 20150925
  6. MEGESTROL [Concomitant]
     Active Substance: MEGESTROL
     Indication: ADVERSE EVENT
     Dates: start: 20150902
  7. OXALIPLATIN. [Suspect]
     Active Substance: OXALIPLATIN
     Indication: GASTRIC CANCER
     Route: 042
     Dates: start: 20150813, end: 20150813
  8. TYLENOL [Concomitant]
     Active Substance: ACETAMINOPHEN
     Indication: ADVERSE EVENT
     Dates: start: 20150914, end: 20150918
  9. TANTUM [Concomitant]
     Active Substance: BENZYDAMINE HYDROCHLORIDE
     Indication: ADVERSE EVENT
     Dates: start: 20150914
  10. DEXAMETHASONE. [Concomitant]
     Active Substance: DEXAMETHASONE
     Indication: PROPHYLAXIS
     Dates: start: 20150925, end: 20150928
  11. DOCETAXEL. [Suspect]
     Active Substance: DOCETAXEL
     Indication: GASTRIC CANCER
     Route: 042
     Dates: start: 20150813, end: 20150813
  12. OXALIPLATIN. [Suspect]
     Active Substance: OXALIPLATIN
     Indication: GASTRIC CANCER
     Route: 042
     Dates: start: 20150925, end: 20150925
  13. ARESTAL [Concomitant]
     Active Substance: LOPERAMIDE OXIDE
     Indication: ADVERSE EVENT
     Dates: start: 20150902
  14. TS-1 [Suspect]
     Active Substance: GIMERACIL\OTERACIL\TEGAFUR
     Indication: GASTRIC CANCER
     Route: 048
     Dates: start: 20150813, end: 20150930
  15. ANPLAG [Concomitant]
     Active Substance: SARPOGRELATE
  16. ZANTAC [Concomitant]
     Active Substance: RANITIDINE HYDROCHLORIDE
     Indication: PROPHYLAXIS
     Dates: start: 20150925, end: 20150928
  17. NASEA [Concomitant]
     Active Substance: RAMOSETRON HYDROCHLORIDE
     Indication: PROPHYLAXIS
     Dates: start: 20150925, end: 20150929

REACTIONS (2)
  - Febrile neutropenia [Fatal]
  - Sepsis [Fatal]

NARRATIVE: CASE EVENT DATE: 20151001
